FAERS Safety Report 8862243 (Version 1)
Quarter: 2012Q4

REPORT INFORMATION
  Report Type: 
  Country: BE (occurrence: BE)
  Receive Date: 20121026
  Receipt Date: 20121026
  Transmission Date: 20130627
  Serious: Yes (Death)
  Sender: FDA-Public Use
  Company Number: BE-JNJFOC-20121012115

PATIENT
  Sex: Female

DRUGS (2)
  1. XARELTO [Suspect]
     Indication: THROMBOSIS PROPHYLAXIS
     Route: 065
     Dates: start: 201208
  2. XARELTO [Suspect]
     Indication: KNEE OPERATION
     Route: 065
     Dates: start: 201208

REACTIONS (1)
  - Thrombosis [Fatal]
